FAERS Safety Report 11290781 (Version 2)
Quarter: 2015Q3

REPORT INFORMATION
  Report Type: Spontaneous
  Country: IT (occurrence: None)
  Receive Date: 20150720
  Receipt Date: 20150724
  Transmission Date: 20151125
  Serious: No
  Sender: FDA-Public Use
  Company Number: 1507ITA006371

PATIENT
  Age: 35 Year
  Sex: Female

DRUGS (1)
  1. ISOCEF (CEFTIBUTEN) CAPSULE, 400 MG [Suspect]
     Active Substance: CEFTIBUTEN
     Dosage: 1 DOSE UNIT, TOTAL
     Route: 048
     Dates: start: 20100401, end: 20100401

REACTIONS (2)
  - Lip oedema [None]
  - Throat tightness [None]

NARRATIVE: CASE EVENT DATE: 20100401
